FAERS Safety Report 24103960 (Version 1)
Quarter: 2024Q3

REPORT INFORMATION
  Report Type: Spontaneous
  Country: GB (occurrence: GB)
  Receive Date: 20240717
  Receipt Date: 20240717
  Transmission Date: 20241017
  Serious: Yes (Disabling)
  Sender: TEVA
  Company Number: GB-MHRA-TPP14079978C122126YC1719231623037

PATIENT
  Age: 76 Year
  Sex: Female
  Weight: 67 kg

DRUGS (9)
  1. ATORVASTATIN [Suspect]
     Active Substance: ATORVASTATIN
     Dosage: IN THE EVENING,
     Route: 065
     Dates: start: 20240513
  2. AMLODIPINE [Concomitant]
     Active Substance: AMLODIPINE BESYLATE
     Dates: start: 20231201
  3. ESTRIOL [Concomitant]
     Active Substance: ESTRIOL
     Dosage: APPLY AT NIGHT
     Dates: start: 20231221
  4. LANSOPRAZOLE [Concomitant]
     Active Substance: LANSOPRAZOLE
     Dates: start: 20240424
  5. HYDRAMED [Concomitant]
     Dosage: TIME INTERVAL: 0.33333333 DAYS: AT BEDTIME,
     Dates: start: 20231201
  6. CETRABEN [Concomitant]
     Dosage: USE AS DIRECTED
     Dates: start: 20231201
  7. XAILIN NIGHT [Concomitant]
     Dosage: APPLY TO DRY EYES WHEN NEEDED
     Route: 047
     Dates: start: 20240227
  8. SENNA [Concomitant]
     Active Substance: SENNA LEAF\SENNOSIDES\SENNOSIDES A AND B
     Dosage: AT NIGHT WHEN REQUIRED
     Dates: start: 20231201
  9. ATENOLOL [Concomitant]
     Active Substance: ATENOLOL
     Dates: start: 20231201

REACTIONS (2)
  - Nausea [Recovered/Resolved]
  - Headache [Recovered/Resolved]

NARRATIVE: CASE EVENT DATE: 20240624
